FAERS Safety Report 9431395 (Version 1)
Quarter: 2013Q3

REPORT INFORMATION
  Report Type: Spontaneous
  Country: CA (occurrence: CA)
  Receive Date: 20130730
  Receipt Date: 20130730
  Transmission Date: 20140515
  Serious: Yes (Other)
  Sender: FDA-Public Use
  Company Number: CA-PFIZER INC-2013217013

PATIENT
  Age: 45 Year
  Sex: Male

DRUGS (3)
  1. SOMAVERT [Suspect]
     Dosage: 15 MG, UNK
     Dates: start: 2006
  2. SOMAVERT [Suspect]
     Dosage: 30 MG, UNK
  3. SANDOSTATIN LAR [Concomitant]
     Dosage: UNK

REACTIONS (1)
  - Osteotomy [Unknown]
